FAERS Safety Report 6614032-6 (Version None)
Quarter: 2010Q1

REPORT INFORMATION
  Report Type: 
  Country: None (occurrence: None)
  Receive Date: 20100304
  Receipt Date: 20100219
  Transmission Date: 20100710
  Serious: Yes (Other)
  Sender: FDA-Public Use
  Company Number: JP-JNJFOC-20100200796

PATIENT
  Age: 66 Year
  Sex: Male

DRUGS (5)
  1. FINIBAX [Suspect]
     Indication: POSTOPERATIVE WOUND INFECTION
     Route: 041
  2. CEFAMEZIN [Suspect]
     Indication: INFECTION PROPHYLAXIS
     Route: 065
  3. VANCOMYCIN [Suspect]
     Indication: INFECTION PROPHYLAXIS
     Route: 065
  4. ZYVOX [Suspect]
     Indication: POSTOPERATIVE WOUND INFECTION
  5. MEROPENEM TRIHYDRATE [Concomitant]
     Indication: BACTERIAL INFECTION
     Route: 065

REACTIONS (3)
  - ALANINE AMINOTRANSFERASE INCREASED [None]
  - ASPARTATE AMINOTRANSFERASE INCREASED [None]
  - BLOOD BILIRUBIN INCREASED [None]
